FAERS Safety Report 6135024-X (Version None)
Quarter: 2009Q1

REPORT INFORMATION
  Report Type: 
  Country: None (occurrence: None)
  Receive Date: 20090327
  Receipt Date: 20090317
  Transmission Date: 20090719
  Serious: Yes (Hospitalization)
  Sender: FDA-Public Use
  Company Number: US-WATSON-2009-01825

PATIENT
  Age: 42 Year
  Sex: Female

DRUGS (1)
  1. TETRACYCLINE HYDROCHLORIDE (WATSON LABORATORIES) [Suspect]
     Indication: TOOTH EXTRACTION
     Dosage: 250 MG QID X 2 OR 3 DAYS
     Route: 048

REACTIONS (2)
  - HAEMODIALYSIS [None]
  - RENAL FAILURE [None]
